FAERS Safety Report 21460942 (Version 2)
Quarter: 2023Q1

REPORT INFORMATION
  Report Type: Other
  Country: AT (occurrence: AT)
  Receive Date: 20221015
  Receipt Date: 20230113
  Transmission Date: 20230418
  Serious: Yes (Death, Life-Threatening, Hospitalization, Other)
  Sender: FDA-Public Use
  Company Number: None

PATIENT
  Age: 52 Year
  Sex: Male

DRUGS (13)
  1. PREDNISOLONE [Suspect]
     Active Substance: PREDNISOLONE
     Indication: Renal transplant
     Dosage: UNK
     Route: 065
  2. TACROLIMUS [Suspect]
     Active Substance: TACROLIMUS
     Indication: Renal transplant
     Dosage: UNK
     Route: 065
  3. AZATHIOPRINE [Suspect]
     Active Substance: AZATHIOPRINE
     Indication: Pulmonary vasculitis
     Dosage: UNK
     Route: 065
  4. AZATHIOPRINE [Suspect]
     Active Substance: AZATHIOPRINE
     Indication: Renal vasculitis
  5. AZATHIOPRINE [Suspect]
     Active Substance: AZATHIOPRINE
     Indication: Ocular vasculitis
  6. AZATHIOPRINE [Suspect]
     Active Substance: AZATHIOPRINE
     Indication: Anti-neutrophil cytoplasmic antibody positive vasculitis
  7. RITUXIMAB [Suspect]
     Active Substance: RITUXIMAB
     Indication: Anti-neutrophil cytoplasmic antibody positive vasculitis
     Dosage: UNK
     Route: 065
  8. RITUXIMAB [Suspect]
     Active Substance: RITUXIMAB
     Indication: Pulmonary vasculitis
  9. RITUXIMAB [Suspect]
     Active Substance: RITUXIMAB
     Indication: Ocular vasculitis
  10. RITUXIMAB [Suspect]
     Active Substance: RITUXIMAB
     Indication: Renal vasculitis
  11. SULFAMETROLE SODIUM;TRIMETHOPRIM [Concomitant]
     Indication: Antibiotic prophylaxis
     Dosage: 0.5 DOSAGE FORM, THRICE  A WEEK
     Route: 065
  12. VALGANCICLOVIR [Concomitant]
     Active Substance: VALGANCICLOVIR
     Indication: Antibiotic prophylaxis
     Dosage: UNK
     Route: 065
  13. VALGANCICLOVIR [Concomitant]
     Active Substance: VALGANCICLOVIR
     Indication: Prophylaxis
     Route: 065

REACTIONS (8)
  - Acute respiratory distress syndrome [Fatal]
  - Acute kidney injury [Fatal]
  - Multiple organ dysfunction syndrome [Fatal]
  - Cerebral nocardiosis [Fatal]
  - Cutaneous nocardiosis [Fatal]
  - Pulmonary nocardiosis [Fatal]
  - COVID-19 pneumonia [Fatal]
  - Off label use [Unknown]
